FAERS Safety Report 8639240 (Version 3)
Quarter: 2012Q4

REPORT INFORMATION
  Report Type: Report from Study
  Country: JP (occurrence: JP)
  Receive Date: 20120627
  Receipt Date: 20121217
  Transmission Date: 20130627
  Serious: Yes (Other)
  Sender: FDA-Public Use
  Company Number: JP-VERTEX PHARMACEUTICALS INC.-AE-2012-009102

PATIENT
  Age: 59 Year
  Sex: Female

DRUGS (10)
  1. VX-950 (TELAPREVIR) [Suspect]
     Indication: CHRONIC HEPATITIS C
     Dosage: 2250 mg, qd
     Route: 048
     Dates: start: 20120412, end: 20120508
  2. VX-950 (TELAPREVIR) [Suspect]
     Dosage: 1500 mg, qd
     Route: 048
     Dates: start: 20120509, end: 20120603
  3. VX-950 (TELAPREVIR) [Suspect]
     Dosage: 1000 mg, qd
     Route: 048
     Dates: start: 20120604, end: 20120612
  4. VX-950 (TELAPREVIR) [Suspect]
     Dosage: 750 mg, qd
     Route: 048
     Dates: start: 20120613, end: 20120615
  5. REBETOL [Suspect]
     Indication: CHRONIC HEPATITIS C
     Dosage: 400 mg, qd
     Route: 048
     Dates: start: 20120412, end: 20120417
  6. REBETOL [Suspect]
     Dosage: 600 mg, qd
     Route: 048
     Dates: start: 20120418, end: 20120615
  7. PEGINTRON                          /01543001/ [Suspect]
     Indication: CHRONIC HEPATITIS C
     Dosage: 1.5 ?g/kg, qw
     Route: 058
     Dates: start: 20120412, end: 20120501
  8. PEGINTRON                          /01543001/ [Suspect]
     Dosage: 1.4 ?g/kg, qw
     Route: 058
     Dates: start: 20120502, end: 20120605
  9. PEGINTRON                          /01543001/ [Suspect]
     Dosage: 1.3 ?g/kg, qw
     Route: 058
     Dates: start: 20120606, end: 20120612
  10. PREDONINE                          /00016201/ [Concomitant]
     Dosage: 25 mg, qd
     Route: 048
     Dates: start: 20120611

REACTIONS (2)
  - Skin disorder [Not Recovered/Not Resolved]
  - Rash [Recovered/Resolved]
